FAERS Safety Report 6474148-4 (Version None)
Quarter: 2009Q4

REPORT INFORMATION
  Report Type: 
  Country: None (occurrence: None)
  Receive Date: 20091204
  Receipt Date: 20091109
  Transmission Date: 20100525
  Serious: No
  Sender: FDA-Public Use
  Company Number: US-BAYER-200938661GPV

PATIENT
  Age: 19 Year
  Sex: Male

DRUGS (1)
  1. HELIXATE FS [Suspect]
     Indication: FACTOR VIII DEFICIENCY
     Route: 042
     Dates: start: 20010101, end: 20091101

REACTIONS (10)
  - ADVERSE REACTION [None]
  - CHEST PAIN [None]
  - DIZZINESS [None]
  - DYSGEUSIA [None]
  - FEELING HOT [None]
  - HEADACHE [None]
  - HYPERSENSITIVITY [None]
  - HYPOAESTHESIA ORAL [None]
  - NAUSEA [None]
  - TREMOR [None]
